FAERS Safety Report 4327724-9 (Version None)
Quarter: 2004Q1

REPORT INFORMATION
  Report Type: 
  Country: None (occurrence: None)
  Receive Date: 20040325
  Receipt Date: 20021009
  Transmission Date: 20041129
  Serious: Yes (Death)
  Sender: FDA-Public Use
  Company Number: 2002IC000289

PATIENT
  Age: 76 Year
  Sex: Female

DRUGS (7)
  1. FLUOROURACIL [Suspect]
     Indication: RECTAL CANCER
     Dosage: SEE IMAGE
     Route: 042
     Dates: start: 20020601, end: 20020712
  2. FLUOROURACIL [Suspect]
     Indication: RECTAL CANCER
     Dosage: SEE IMAGE
     Route: 042
     Dates: start: 20020716, end: 20020723
  3. LEUCOVORIN CALCIUM [Suspect]
     Indication: RECTAL CANCER
     Dosage: SEE IMAGE
     Route: 042
     Dates: start: 20020716, end: 20020716
  4. LEUCOVORIN CALCIUM [Suspect]
     Indication: RECTAL CANCER
     Dosage: SEE IMAGE
     Route: 042
     Dates: start: 20020723, end: 20020723
  5. CAMPTOSAR [Suspect]
     Indication: RECTAL CANCER
     Dosage: 100 MG; INTRAVENOUS
     Route: 042
     Dates: start: 20020716, end: 20020716
  6. RANDA [Concomitant]
  7. UFT [Concomitant]

REACTIONS (14)
  - ABDOMINAL PAIN [None]
  - ANURIA [None]
  - BLOOD LACTATE DEHYDROGENASE INCREASED [None]
  - DIARRHOEA [None]
  - DISSEMINATED INTRAVASCULAR COAGULATION [None]
  - GRANULOCYTOPENIA [None]
  - INFECTION [None]
  - INFECTION IN AN IMMUNOCOMPROMISED HOST [None]
  - MULTI-ORGAN FAILURE [None]
  - PULMONARY OEDEMA [None]
  - PYREXIA [None]
  - RESPIRATORY DISORDER [None]
  - SHOCK [None]
  - VOMITING [None]
